FAERS Safety Report 5083006-1 (Version None)
Quarter: 2006Q3

REPORT INFORMATION
  Report Type: 
  Country: None (occurrence: None)
  Receive Date: 20060720
  Receipt Date: 20060329
  Transmission Date: 20061208
  Serious: Yes (Other)
  Sender: FDA-Public Use
  Company Number: 2006045324

PATIENT
  Sex: Female

DRUGS (2)
  1. CELEBREX [Suspect]
     Indication: INFLAMMATION
     Dates: start: 19990101
  2. CELEBREX [Suspect]
     Indication: PAIN
     Dates: start: 19990101

REACTIONS (1)
  - MYOCARDIAL INFARCTION [None]
